FAERS Safety Report 10648524 (Version 1)
Quarter: 2014Q4

REPORT INFORMATION
  Report Type: Spontaneous
  Country: US (occurrence: None)
  Receive Date: 20141211
  Receipt Date: 20141211
  Transmission Date: 20150529
  Serious: Yes (Death, Hospitalization)
  Sender: FDA-Public Use
  Company Number: None

PATIENT
  Age: 60 Year
  Sex: Female

DRUGS (1)
  1. BYDUREON [Suspect]
     Active Substance: EXENATIDE
     Indication: TYPE 2 DIABETES MELLITUS
     Dates: start: 20140510, end: 20140630

REACTIONS (7)
  - Pancreatic carcinoma metastatic [None]
  - Metastases to liver [None]
  - Metastases to spleen [None]
  - Metastases to lung [None]
  - Blood calcium increased [None]
  - Blood urine present [None]
  - Metastases to adrenals [None]

NARRATIVE: CASE EVENT DATE: 201406
